FAERS Safety Report 6282935-0 (Version None)
Quarter: 2009Q3

REPORT INFORMATION
  Report Type: 
  Country: None (occurrence: None)
  Receive Date: 20090724
  Receipt Date: 20090717
  Transmission Date: 20100115
  Serious: Yes (Life-Threatening, Hospitalization, Other)
  Sender: FDA-Public Use
  Company Number: DE-ELI_LILLY_AND_COMPANY-DE200907003915

PATIENT
  Sex: Female
  Weight: 70 kg

DRUGS (3)
  1. GEMZAR [Suspect]
     Indication: PANCREATIC CARCINOMA
     Dosage: 1000 MG/M2, UNK
     Route: 042
     Dates: start: 20090101, end: 20090623
  2. ONDANSETRON [Concomitant]
     Dosage: 8 MG, UNK
  3. FORTECORTIN [Concomitant]
     Dosage: 8 MG, UNK

REACTIONS (2)
  - PNEUMONIA ASPIRATION [None]
  - RENAL FAILURE ACUTE [None]
